FAERS Safety Report 16270101 (Version 1)
Quarter: 2019Q2

REPORT INFORMATION
  Report Type: Spontaneous
  Country: US (occurrence: US)
  Receive Date: 20190503
  Receipt Date: 20190503
  Transmission Date: 20190711
  Serious: Yes (Other)
  Sender: FDA-Public Use
  Company Number: US-CELGENEUS-USA-20190411474

PATIENT
  Sex: Female

DRUGS (3)
  1. IBUPROFEN. [Concomitant]
     Active Substance: IBUPROFEN
     Indication: PRODUCT USED FOR UNKNOWN INDICATION
     Dosage: 2400 MILLIGRAM
     Route: 065
     Dates: start: 20190117
  2. OTEZLA [Suspect]
     Active Substance: APREMILAST
     Indication: POLYARTHRITIS
     Dosage: 60 MILLIGRAM
     Route: 048
     Dates: start: 20181023
  3. LOVENOX [Concomitant]
     Active Substance: ENOXAPARIN SODIUM
     Indication: PRODUCT USED FOR UNKNOWN INDICATION
     Route: 065

REACTIONS (4)
  - Pain [Unknown]
  - Product dose omission [Unknown]
  - Haematochezia [Unknown]
  - Product administration error [Unknown]
